FAERS Safety Report 20601744 (Version 3)
Quarter: 2022Q3

REPORT INFORMATION
  Report Type: Spontaneous
  Country: JP (occurrence: JP)
  Receive Date: 20220316
  Receipt Date: 20220715
  Transmission Date: 20221026
  Serious: Yes (Hospitalization)
  Sender: FDA-Public Use
  Company Number: JP-GLAXOSMITHKLINE-JP2022JPN044484

PATIENT

DRUGS (6)
  1. SOTROVIMAB [Suspect]
     Active Substance: SOTROVIMAB
     Indication: COVID-19
     Dosage: 500 MG, SINGLE
     Dates: start: 20220209
  2. VEKLURY [Suspect]
     Active Substance: REMDESIVIR
     Indication: COVID-19
     Dosage: 200 MG FOR 1 DAY, 100 MG FOR 2 DAYS,  NUMBER OF DOSE: 3
     Dates: start: 20220208, end: 20220210
  3. PIPERACILLIN AND TAZOBACTAM [Suspect]
     Active Substance: PIPERACILLIN SODIUM\TAZOBACTAM SODIUM
     Dosage: UNK
  4. LORATADINE OD TABLETS [Concomitant]
     Dosage: 10 MG, QD, AFTER DINNER
  5. ACETAMINOPHEN [Concomitant]
     Active Substance: ACETAMINOPHEN
     Indication: Pyrexia
     Dosage: 400 MG, FOR 38 DEGREES CELSIUS OR HIGHER,
     Dates: start: 20220208, end: 20220209
  6. SODIUM PICOSULFATE ORAL SOLUTION [Concomitant]
     Dosage: 15 DF, BEFORE BEDTIME
     Dates: start: 20220208

REACTIONS (2)
  - Fracture [Unknown]
  - Haemoglobin decreased [Recovering/Resolving]

NARRATIVE: CASE EVENT DATE: 20220221
